FAERS Safety Report 9267827 (Version 1)
Quarter: 2013Q2

REPORT INFORMATION
  Report Type: Report from Study
  Country: CA (occurrence: CA)
  Receive Date: 20130502
  Receipt Date: 20130502
  Transmission Date: 20140414
  Serious: Yes (Other)
  Sender: FDA-Public Use
  Company Number: CA-EISAI INC-E2007-01136-SOL-CA

PATIENT
  Age: 43 Year
  Sex: Female

DRUGS (1)
  1. FYCOMPA (PERAMPANEL) [Suspect]
     Indication: PARTIAL SEIZURES
     Route: 048
     Dates: start: 201004, end: 2013

REACTIONS (2)
  - Drop attacks [Unknown]
  - Drug ineffective [Unknown]
